FAERS Safety Report 24768186 (Version 3)
Quarter: 2025Q1

REPORT INFORMATION
  Report Type: Spontaneous
  Country: US (occurrence: US)
  Receive Date: 20241223
  Receipt Date: 20250330
  Transmission Date: 20250409
  Serious: Yes (Other)
  Sender: SANOFI AVENTIS
  Company Number: US-SA-2024SA376523

PATIENT
  Age: 72 Year
  Sex: Male
  Weight: 78.64 kg

DRUGS (16)
  1. DUPIXENT [Suspect]
     Active Substance: DUPILUMAB
     Indication: Neurodermatitis
     Dosage: 300 MG, QOW
     Route: 058
  2. DICYCLOMINE [Concomitant]
     Active Substance: DICYCLOMINE HYDROCHLORIDE
     Dates: start: 202410
  3. ALPRAZOLAM [Concomitant]
     Active Substance: ALPRAZOLAM
  4. PANTOPRAZOLE [Concomitant]
     Active Substance: PANTOPRAZOLE
  5. FLUTICASONE PROPIONATE [Concomitant]
     Active Substance: FLUTICASONE PROPIONATE
  6. DORZOLAMIDE\TIMOLOL [Concomitant]
     Active Substance: DORZOLAMIDE\TIMOLOL
  7. NAPROXEN [Concomitant]
     Active Substance: NAPROXEN
  8. SIMVASTATIN [Concomitant]
     Active Substance: SIMVASTATIN
  9. REFRESH LIQUIGEL [Concomitant]
     Active Substance: CARBOXYMETHYLCELLULOSE SODIUM
  10. METAMUCIL [Concomitant]
     Active Substance: PLANTAGO SEED
  11. RESTASIS [Concomitant]
     Active Substance: CYCLOSPORINE
  12. LATANOPROST [Concomitant]
     Active Substance: LATANOPROST
  13. BRIMONIDINE TARTRATE [Concomitant]
     Active Substance: BRIMONIDINE TARTRATE
  14. ALBUTEROL [Concomitant]
     Active Substance: ALBUTEROL
  15. AZELASTINE [Concomitant]
     Active Substance: AZELASTINE
  16. ATENOLOL [Concomitant]
     Active Substance: ATENOLOL

REACTIONS (16)
  - Retinal detachment [Unknown]
  - Pneumonia influenzal [Unknown]
  - Intervertebral disc degeneration [Unknown]
  - Rotator cuff syndrome [Unknown]
  - Pain [Unknown]
  - Chronic obstructive pulmonary disease [Unknown]
  - Cough [Unknown]
  - Gastrooesophageal reflux disease [Unknown]
  - Chest pain [Unknown]
  - Nausea [Recovered/Resolved]
  - Sensation of foreign body [Unknown]
  - Malaise [Not Recovered/Not Resolved]
  - Chest discomfort [Not Recovered/Not Resolved]
  - Abdominal discomfort [Not Recovered/Not Resolved]
  - Wheezing [Not Recovered/Not Resolved]
  - Suspected COVID-19 [Not Recovered/Not Resolved]

NARRATIVE: CASE EVENT DATE: 20230101
